FAERS Safety Report 19222766 (Version 2)
Quarter: 2021Q2

REPORT INFORMATION
  Report Type: Spontaneous
  Country: GB (occurrence: GB)
  Receive Date: 20210506
  Receipt Date: 20210629
  Transmission Date: 20210717
  Serious: Yes (Hospitalization)
  Sender: FDA-Public Use
  Company Number: GB-NOVOPROD-807719

PATIENT
  Age: 30 Year
  Sex: Female

DRUGS (2)
  1. NOVORAPID [Suspect]
     Active Substance: INSULIN ASPART
     Indication: DIABETES MELLITUS
     Dosage: 37 IU, QD
     Route: 058
  2. NOVORAPID [Suspect]
     Active Substance: INSULIN ASPART
     Dosage: CHANGED THE CARTRIDGE 5 TIMES
     Route: 058

REACTIONS (3)
  - Diabetic ketoacidosis [Unknown]
  - Blood glucose increased [Unknown]
  - Product leakage [Unknown]

NARRATIVE: CASE EVENT DATE: 20210425
